FAERS Safety Report 9492641 (Version 2)
Quarter: 2013Q3

REPORT INFORMATION
  Report Type: Spontaneous
  Country: DE (occurrence: DE)
  Receive Date: 20130830
  Receipt Date: 20130913
  Transmission Date: 20140515
  Serious: Yes (Hospitalization)
  Sender: FDA-Public Use
  Company Number: DE-GILEAD-2013-0082273

PATIENT
  Age: 86 Year
  Sex: Female

DRUGS (4)
  1. RANOLAZINE [Suspect]
     Indication: DYSPNOEA EXERTIONAL
     Dosage: 375 MG, QD
     Route: 048
     Dates: start: 20130711, end: 20130717
  2. RANOLAZINE [Suspect]
     Indication: ANGINA PECTORIS
  3. RAMIPRIL [Concomitant]
     Indication: HYPERTENSION
     Dosage: 5 MG, QD
  4. TORASEMID [Concomitant]
     Indication: HYPERTENSION
     Dosage: 5 MG, QD

REACTIONS (6)
  - Fall [Recovered/Resolved]
  - Laceration [Recovered/Resolved]
  - Contusion [Recovered/Resolved]
  - Retrograde amnesia [Unknown]
  - Syncope [Recovered/Resolved]
  - Dizziness [Unknown]
